FAERS Safety Report 10078576 (Version 1)
Quarter: 2014Q2

REPORT INFORMATION
  Report Type: Spontaneous
  Country: US (occurrence: US)
  Receive Date: 20140415
  Receipt Date: 20140415
  Transmission Date: 20141212
  Serious: Yes (Other)
  Sender: FDA-Public Use
  Company Number: US-ASTRAZENECA-2014SE24121

PATIENT
  Sex: Male

DRUGS (2)
  1. FASLODEX [Suspect]
     Route: 030
  2. TAMOXIFEN [Suspect]
     Route: 048

REACTIONS (1)
  - Breast cancer [Unknown]
